FAERS Safety Report 7134857-0 (Version None)
Quarter: 2010Q4

REPORT INFORMATION
  Report Type: 
  Country: None (occurrence: None)
  Receive Date: 20101203
  Receipt Date: 20101124
  Transmission Date: 20110411
  Serious: Yes (Hospitalization, Other)
  Sender: FDA-Public Use
  Company Number: CA-JNJFOC-20100505778

PATIENT
  Sex: Female
  Weight: 84.4 kg

DRUGS (12)
  1. REMICADE [Suspect]
     Indication: CROHN'S DISEASE
     Dosage: 6TH DOSE
     Route: 042
  2. REMICADE [Suspect]
     Route: 042
  3. IMURAN [Suspect]
     Indication: CROHN'S DISEASE
  4. SYNTHROID [Concomitant]
  5. CELEXA [Concomitant]
  6. NORTRIPTYLINE HCL [Concomitant]
  7. GABAPENTIN [Concomitant]
  8. QUETIAPINE FUMARATE [Concomitant]
  9. PERCOCET [Concomitant]
  10. HYDROXYZINE [Concomitant]
  11. PREMARIN [Concomitant]
  12. CITALOPRAM HYDROBROMIDE [Concomitant]

REACTIONS (3)
  - CELLULITIS [None]
  - HERPES ZOSTER [None]
  - MIGRAINE [None]
